FAERS Safety Report 9468836 (Version 1)
Quarter: 2013Q3

REPORT INFORMATION
  Report Type: Spontaneous
  Country: US (occurrence: None)
  Receive Date: 20130816
  Receipt Date: 20130816
  Transmission Date: 20140515
  Serious: Yes (Other)
  Sender: FDA-Public Use
  Company Number: JPI-P-034339

PATIENT
  Age: 51 Year
  Sex: Female
  Weight: 62.6 kg

DRUGS (8)
  1. XYREM [Suspect]
     Indication: NARCOLEPSY
     Route: 048
     Dates: start: 20050310
  2. XYREM [Suspect]
     Indication: SOMNOLENCE
     Route: 048
     Dates: start: 20050310
  3. MORPHINE [Concomitant]
  4. FUROSEMIDE [Concomitant]
  5. LOSARTAN/HCTZ [Concomitant]
  6. POTASSIUM/CHLORIDE [Concomitant]
  7. HYDROCODONE [Concomitant]
  8. MULTIVITAMINS [Concomitant]

REACTIONS (10)
  - Compression fracture [None]
  - Fall [None]
  - Excoriation [None]
  - Vaginismus [None]
  - Knee arthroplasty [None]
  - Bladder disorder [None]
  - Scar [None]
  - Laceration [None]
  - Skeletal injury [None]
  - Bladder operation [None]
